FAERS Safety Report 9760271 (Version 3)
Quarter: 2015Q3

REPORT INFORMATION
  Report Type: Spontaneous
  Country: US (occurrence: US)
  Receive Date: 20131216
  Receipt Date: 20150806
  Transmission Date: 20151125
  Serious: No
  Sender: FDA-Public Use
  Company Number: US-GILEAD-2010-0028895

PATIENT
  Age: 60 Year
  Sex: Female

DRUGS (2)
  1. BUMEX [Concomitant]
     Active Substance: BUMETANIDE
  2. LETAIRIS [Suspect]
     Active Substance: AMBRISENTAN
     Indication: PULMONARY ARTERIAL HYPERTENSION
     Route: 048
     Dates: start: 20100312

REACTIONS (2)
  - Dry mouth [Unknown]
  - Peripheral swelling [Unknown]
